FAERS Safety Report 8032940-9 (Version None)
Quarter: 2011Q4

REPORT INFORMATION
  Report Type: 
  Country: None (occurrence: None)
  Receive Date: 20111223
  Receipt Date: 20111216
  Transmission Date: 20120403
  Serious: Yes (Hospitalization)
  Sender: FDA-Public Use
  Company Number: 2011SP058486

PATIENT
  Age: 59 Year
  Sex: Female

DRUGS (12)
  1. FLUTOPRAZEPAM [Concomitant]
  2. ETIZOLAM [Concomitant]
  3. MAGNESIUM OXIDE [Concomitant]
  4. FAMOTIDINE [Concomitant]
  5. DOMPERIDONE [Concomitant]
  6. SENNOSIDE A+B [Concomitant]
  7. AMLODIPINE BESYLATE [Concomitant]
  8. ATORVASTATIN CALCIUM [Concomitant]
  9. DULOXETINE HYDROCHLORIDE [Concomitant]
  10. KETOPROFEN [Concomitant]
  11. MIRTAZAPINE [Suspect]
     Indication: PRODUCT USED FOR UNKNOWN INDICATION
     Dosage: 45 MG;QD;PO
     Route: 048
  12. REBAMIPIDE [Concomitant]

REACTIONS (1)
  - BLOOD GLUCOSE INCREASED [None]
